FAERS Safety Report 4514467-1 (Version None)
Quarter: 2004Q4

REPORT INFORMATION
  Report Type: 
  Country: None (occurrence: None)
  Receive Date: 20040928
  Receipt Date: 20040716
  Transmission Date: 20050328
  Serious: No
  Sender: FDA-Public Use
  Company Number: 04P-163-0267294-00

PATIENT
  Age: 64 Year
  Sex: Female
  Weight: 90.2658 kg

DRUGS (5)
  1. HUMIRA [Suspect]
     Indication: RHEUMATOID ARTHRITIS
     Dosage: 40 MG, 1 IN 2 WK, SUBCUTANEOUS
     Route: 058
     Dates: start: 20040501
  2. PHENYTOIN SODIUM [Concomitant]
  3. HYDROCHLOROTHIAZIDE [Concomitant]
  4. PAROXETINE HYDROCHLORIDE [Concomitant]
  5. MULTIVITAMIN [Concomitant]

REACTIONS (1)
  - MUSCLE STRAIN [None]
